FAERS Safety Report 10078304 (Version 1)
Quarter: 2014Q2

REPORT INFORMATION
  Report Type: Spontaneous
  Country: JP (occurrence: JP)
  Receive Date: 20140415
  Receipt Date: 20140415
  Transmission Date: 20141212
  Serious: Yes (Other)
  Sender: FDA-Public Use
  Company Number: JP-ROCHE-1380541

PATIENT
  Age: 68 Year
  Sex: Male

DRUGS (7)
  1. HERCEPTIN [Suspect]
     Indication: METASTATIC GASTRIC CANCER
     Route: 041
  2. HERCEPTIN [Suspect]
     Indication: METASTATIC GASTRIC CANCER
     Route: 041
  3. HERCEPTIN [Suspect]
     Indication: METASTATIC GASTRIC CANCER
     Route: 041
  4. HERCEPTIN [Suspect]
     Indication: METASTATIC GASTRIC CANCER
     Route: 041
  5. XELODA [Suspect]
     Indication: METASTATIC GASTRIC CANCER
     Route: 048
  6. XELODA [Suspect]
     Indication: METASTATIC GASTRIC CANCER
     Route: 048
  7. CISPLATIN [Concomitant]
     Indication: METASTATIC GASTRIC CANCER
     Route: 041

REACTIONS (3)
  - Gastrooesophageal reflux disease [Recovered/Resolved]
  - Vomiting [Recovered/Resolved]
  - Pneumonia [Unknown]
